APPROVED DRUG PRODUCT: DIVALPROEX SODIUM
Active Ingredient: DIVALPROEX SODIUM
Strength: EQ 250MG VALPROIC ACID
Dosage Form/Route: TABLET, EXTENDED RELEASE;ORAL
Application: A209286 | Product #001 | TE Code: AB
Applicant: LUPIN LTD
Approved: Oct 18, 2019 | RLD: No | RS: No | Type: RX